FAERS Safety Report 6183979-X (Version None)
Quarter: 2009Q2

REPORT INFORMATION
  Report Type: 
  Country: None (occurrence: None)
  Receive Date: 20090506
  Receipt Date: 20090420
  Transmission Date: 20091009
  Serious: Yes (Other)
  Sender: FDA-Public Use
  Company Number: 8045255

PATIENT
  Age: 61 Year
  Sex: Male

DRUGS (1)
  1. KEPPRA [Suspect]
     Indication: EPILEPSY
     Dosage: 500 MG 2/D PO
     Route: 048
     Dates: start: 20090106

REACTIONS (1)
  - ERECTILE DYSFUNCTION [None]
